FAERS Safety Report 4929273-3 (Version None)
Quarter: 2006Q1

REPORT INFORMATION
  Report Type: 
  Country: None (occurrence: None)
  Receive Date: 20060223
  Receipt Date: 20060210
  Transmission Date: 20060701
  Serious: Yes (Life-Threatening, Hospitalization)
  Sender: FDA-Public Use
  Company Number: HQWYE577130JAN06

PATIENT
  Age: 70 Year
  Sex: Male

DRUGS (6)
  1. INDERAL [Suspect]
     Dosage: 40 MG 1X PER 1 DAY, ORAL
     Route: 048
  2. POTASSIUM CHLORIDE [Suspect]
     Indication: BLOOD POTASSIUM DECREASED
     Dosage: 40 MEQ 1X PER 1 DAY, ORAL
     Route: 048
  3. SPIRONOLACTONE [Suspect]
     Dosage: 50 MG 2X PER 1 DAY
  4. MAGNESIUM OXIDE (MAGNESIUM OXIDE) [Concomitant]
  5. THIAMINE (THIAMINE) [Concomitant]
  6. FOLIC ACID [Concomitant]

REACTIONS (18)
  - AGGRESSION [None]
  - ASTHENIA [None]
  - ATRIOVENTRICULAR BLOCK FIRST DEGREE [None]
  - BEDRIDDEN [None]
  - BLOOD CREATININE INCREASED [None]
  - BLOOD GLUCOSE INCREASED [None]
  - CACHEXIA [None]
  - CONFUSIONAL STATE [None]
  - ELECTROCARDIOGRAM T WAVE PEAKED [None]
  - HYPERKALAEMIA [None]
  - LETHARGY [None]
  - MUSCULAR WEAKNESS [None]
  - ORAL INTAKE REDUCED [None]
  - RESPIRATORY RATE INCREASED [None]
  - SINUS BRADYCARDIA [None]
  - SKIN TURGOR DECREASED [None]
  - URINE OUTPUT DECREASED [None]
  - VENTRICULAR HYPERTROPHY [None]
